FAERS Safety Report 25910815 (Version 1)
Quarter: 2025Q4

REPORT INFORMATION
  Report Type: Spontaneous
  Country: US (occurrence: US)
  Receive Date: 20251013
  Receipt Date: 20251013
  Transmission Date: 20260118
  Serious: Yes (Other)
  Sender: COLLEGIUM PHARMACEUTICAL
  Company Number: US-COLLEGIUM PHARMACEUTICAL, INC.-20251002610

PATIENT
  Age: 32 Year
  Sex: Male

DRUGS (8)
  1. XTAMPZA ER [Suspect]
     Active Substance: OXYCODONE
     Indication: Proctalgia
     Dosage: UNK, UNKNOWN
     Route: 065
  2. XTAMPZA ER [Suspect]
     Active Substance: OXYCODONE
     Indication: Abdominal pain
  3. XTAMPZA ER [Suspect]
     Active Substance: OXYCODONE
     Indication: Rectal spasm
  4. XTAMPZA ER [Suspect]
     Active Substance: OXYCODONE
     Indication: Rectal discharge
  5. BOTULINUM TOXIN NOS [Suspect]
     Active Substance: BOTULINUM TOXIN NOS
     Indication: Proctalgia
     Dosage: UNK, UNKNOWN
     Route: 065
  6. BOTULINUM TOXIN NOS [Suspect]
     Active Substance: BOTULINUM TOXIN NOS
     Indication: Abdominal pain
  7. BOTULINUM TOXIN NOS [Suspect]
     Active Substance: BOTULINUM TOXIN NOS
     Indication: Rectal spasm
  8. BOTULINUM TOXIN NOS [Suspect]
     Active Substance: BOTULINUM TOXIN NOS
     Indication: Rectal discharge

REACTIONS (6)
  - Levator syndrome [Recovering/Resolving]
  - Drug dependence [Recovered/Resolved]
  - Visceral pain [Recovering/Resolving]
  - Anal incontinence [Recovering/Resolving]
  - Condition aggravated [Recovering/Resolving]
  - Therapy partial responder [Unknown]
